FAERS Safety Report 7217357-9 (Version None)
Quarter: 2011Q1

REPORT INFORMATION
  Report Type: 
  Country: None (occurrence: None)
  Receive Date: 20110110
  Receipt Date: 20110105
  Transmission Date: 20110831
  Serious: No
  Sender: FDA-Public Use
  Company Number: DE-SANOFI-AVENTIS-2011SA000815

PATIENT
  Sex: Female

DRUGS (3)
  1. ARAVA [Suspect]
     Route: 048
  2. HUMIRA [Concomitant]
     Route: 065
  3. ORAL CONTRACEPTIVE NOS [Interacting]
     Indication: CONTRACEPTION
     Route: 048

REACTIONS (3)
  - DRUG EXPOSURE DURING PREGNANCY [None]
  - PREGNANCY ON ORAL CONTRACEPTIVE [None]
  - DRUG INTERACTION [None]
